FAERS Safety Report 13750774 (Version 1)
Quarter: 2017Q3

REPORT INFORMATION
  Report Type: Spontaneous
  Country: IT (occurrence: IT)
  Receive Date: 20170713
  Receipt Date: 20170713
  Transmission Date: 20171127
  Serious: Yes (Other)
  Sender: FDA-Public Use
  Company Number: IT-FRESENIUS KABI-FK201705982

PATIENT
  Age: 29 Year
  Sex: Male

DRUGS (1)
  1. PROPOFOL (MANUFACTURER UNKNOWN) [Suspect]
     Active Substance: PROPOFOL
     Indication: STATUS EPILEPTICUS
     Route: 042

REACTIONS (4)
  - Multiple organ dysfunction syndrome [Unknown]
  - Propofol infusion syndrome [Unknown]
  - Off label use [Unknown]
  - Product use in unapproved indication [Unknown]
